FAERS Safety Report 16794925 (Version 1)
Quarter: 2019Q4

REPORT INFORMATION
  Report Type: Spontaneous
  Country: US (occurrence: US)
  Receive Date: 20190910
  Receipt Date: 20190910
  Transmission Date: 20200122
  Serious: Yes (Hospitalization)
  Sender: FDA-Public Use
  Company Number: None

PATIENT
  Age: 72 Year
  Sex: Female

DRUGS (4)
  1. ARMOUR THYRO [Concomitant]
  2. GNP IODIDES/ GNP IODIDES TIN DECOLOR [Concomitant]
  3. GENOTROPIN [Suspect]
     Active Substance: SOMATROPIN
     Indication: HYPOPITUITARISM
     Route: 058
     Dates: start: 20131022
  4. HRT BASE CREAM/MELATONIN [Concomitant]

REACTIONS (1)
  - Tendon rupture [None]
